FAERS Safety Report 4832876-8 (Version None)
Quarter: 2005Q4

REPORT INFORMATION
  Report Type: 
  Country: None (occurrence: None)
  Receive Date: 20051121
  Receipt Date: 20030617
  Transmission Date: 20060501
  Serious: Yes (Hospitalization)
  Sender: FDA-Public Use
  Company Number: SE-GLAXOSMITHKLINE-B0302490A

PATIENT
  Age: 51 Year
  Sex: Female

DRUGS (4)
  1. ZYBAN [Suspect]
     Dates: start: 20030501, end: 20030614
  2. BRICANYL [Concomitant]
  3. PULMICORT [Concomitant]
  4. ZYRLEX [Concomitant]
     Route: 065

REACTIONS (13)
  - ANAEMIA [None]
  - DIZZINESS [None]
  - EYE PAIN [None]
  - FACIAL PAIN [None]
  - HEADACHE [None]
  - LEUKOPENIA [None]
  - MENINGITIS [None]
  - NAUSEA [None]
  - NEUTROPENIA [None]
  - PALPITATIONS [None]
  - PARAESTHESIA [None]
  - PHOTOSENSITIVITY REACTION [None]
  - PYREXIA [None]
